FAERS Safety Report 4634894-1 (Version None)
Quarter: 2005Q2

REPORT INFORMATION
  Report Type: 
  Country: None (occurrence: None)
  Receive Date: 20050412
  Receipt Date: 20050330
  Transmission Date: 20051028
  Serious: Yes (Hospitalization)
  Sender: FDA-Public Use
  Company Number: 2005053065

PATIENT
  Age: 12 Year
  Sex: Female
  Weight: 33 kg

DRUGS (5)
  1. FLUCONAZOLE [Suspect]
     Indication: SEPSIS
     Dosage: INTRAVENOUS
     Route: 042
     Dates: start: 20050126, end: 20050217
  2. AMIKACIN [Suspect]
     Indication: SEPSIS
     Dosage: INTRAVENOUS
     Route: 042
     Dates: start: 20050204, end: 20050210
  3. RIFAMPICIN [Suspect]
     Indication: SEPSIS
     Dosage: INTRAVENOUS
     Route: 042
     Dates: start: 20050126, end: 20050210
  4. PIP/TAZO (PIPERACILLIN SODIUM, TAZOBACTAM SODIUM) [Suspect]
     Indication: SEPSIS
     Dosage: INTRAVENOUS
     Route: 042
     Dates: start: 20050204, end: 20050210
  5. VANCOMYCIN HYDROCHLORIDE [Suspect]
     Indication: SEPSIS
     Dosage: INTRAVENOUS
     Route: 042
     Dates: start: 20050126, end: 20050217

REACTIONS (10)
  - CHEILITIS [None]
  - CYTOLYTIC HEPATITIS [None]
  - DRUG RASH WITH EOSINOPHILIA AND SYSTEMIC SYMPTOMS [None]
  - EPIDERMAL NECROSIS [None]
  - HYPEREOSINOPHILIC SYNDROME [None]
  - LEUKOPENIA [None]
  - LYMPHADENOPATHY [None]
  - LYMPHOCYTIC DERMATITIS [None]
  - NEUTROPENIA [None]
  - OEDEMA PERIPHERAL [None]
